FAERS Safety Report 9338600 (Version 3)
Quarter: 2013Q4

REPORT INFORMATION
  Report Type: Report from Study
  Country: BR (occurrence: BR)
  Receive Date: 20130610
  Receipt Date: 20131104
  Transmission Date: 20140711
  Serious: Yes (Hospitalization, Other)
  Sender: FDA-Public Use
  Company Number: PHHY2013BR054813

PATIENT
  Age: 59 Year
  Sex: Female
  Weight: 73 kg

DRUGS (4)
  1. FORASEQ [Suspect]
     Indication: DYSPNOEA
     Dosage: 1 DF, BID (ONE INHLATION IN THE MORNING, ONE INHLATION AT NIGHT)
     Dates: start: 201003
  2. FORASEQ [Suspect]
     Indication: LUNG DISORDER
  3. FORASEQ [Suspect]
     Indication: OFF LABEL USE
  4. VERAPAMIL [Concomitant]
     Indication: HYPERTENSION
     Dosage: 1 DF, 1 TABLET PER DAY
     Route: 048

REACTIONS (8)
  - Dyspnoea [Recovered/Resolved]
  - Weight increased [Not Recovered/Not Resolved]
  - Asthmatic crisis [Recovering/Resolving]
  - Abdominal distension [Not Recovered/Not Resolved]
  - Malaise [Unknown]
  - Abasia [Recovered/Resolved]
  - Heart rate increased [Recovered/Resolved]
  - Palpitations [Recovered/Resolved]
